FAERS Safety Report 6323834-5 (Version None)
Quarter: 2009Q3

REPORT INFORMATION
  Report Type: 
  Country: None (occurrence: None)
  Receive Date: 20090824
  Receipt Date: 20090603
  Transmission Date: 20100115
  Serious: No
  Sender: FDA-Public Use
  Company Number: US-ABBOTT-09P-163-0577638-00

PATIENT
  Sex: Male

DRUGS (2)
  1. NIASPAN [Suspect]
     Indication: LOW DENSITY LIPOPROTEIN INCREASED
     Dosage: AT BEDTIME
     Dates: start: 20090401
  2. UNSPECIFIED MEDICATION [Concomitant]
     Indication: PROSTATIC DISORDER

REACTIONS (2)
  - FLUSHING [None]
  - TERMINAL INSOMNIA [None]
